FAERS Safety Report 11311057 (Version 8)
Quarter: 2016Q2

REPORT INFORMATION
  Report Type: Report from Study
  Country: US (occurrence: US)
  Receive Date: 20150727
  Receipt Date: 20160617
  Transmission Date: 20160815
  Serious: No
  Sender: FDA-Public Use
  Company Number: PHEH2015US010405

PATIENT
  Age: 57 Year
  Sex: Female
  Weight: 63.39 kg

DRUGS (18)
  1. VITAMIN D3 [Concomitant]
     Active Substance: CHOLECALCIFEROL
     Indication: MULTIPLE SCLEROSIS
     Dosage: 1000 IU, QD
     Route: 048
     Dates: start: 201404
  2. CARBAMAZEPIN ER [Concomitant]
     Indication: SLEEP DISORDER
     Dosage: 400 MG, BID
     Route: 048
     Dates: start: 201404
  3. QUETIAPINE FUMARATE. [Concomitant]
     Active Substance: QUETIAPINE FUMARATE
     Indication: BIPOLAR DISORDER
     Dosage: 100 MG, QHS (NIGHT)
     Route: 048
     Dates: start: 201409, end: 20150613
  4. CARBAMAZEPIN ER [Concomitant]
     Indication: PAIN
  5. LEVOTHYROXINE. [Concomitant]
     Active Substance: LEVOTHYROXINE
     Indication: HYPOTHYROIDISM
     Dosage: 50 MG, QD
     Route: 048
     Dates: start: 200503
  6. QUETIAPINE FUMARATE. [Concomitant]
     Active Substance: QUETIAPINE FUMARATE
     Dosage: 50 MG, QHS
     Route: 048
     Dates: start: 20150613
  7. CALCIUM [Concomitant]
     Active Substance: CALCIUM
     Indication: BONE DISORDER
     Dosage: 500 MG, QD
     Route: 048
     Dates: start: 201003
  8. TEGRETOL XR [Concomitant]
     Active Substance: CARBAMAZEPINE
     Indication: NEURALGIA
     Dosage: UNK
     Route: 065
     Dates: start: 20160120
  9. GILENYA [Suspect]
     Active Substance: FINGOLIMOD HYDROCHLORIDE
     Indication: MULTIPLE SCLEROSIS
     Dosage: 0.5 MG, QD
     Route: 048
     Dates: start: 20150209
  10. GILENYA [Suspect]
     Active Substance: FINGOLIMOD HYDROCHLORIDE
     Dosage: 0.5 MG, QD
     Route: 048
     Dates: start: 20150228
  11. LYRICA [Concomitant]
     Active Substance: PREGABALIN
     Indication: MULTIPLE SCLEROSIS
     Dosage: 100 MG, QD
     Route: 048
     Dates: start: 200503
  12. ESTRACE [Concomitant]
     Active Substance: ESTRADIOL
     Indication: VULVOVAGINAL INJURY
     Dosage: 0.1 MG, QHS
     Route: 048
     Dates: start: 201204
  13. VITAMIN B12 [Concomitant]
     Active Substance: CYANOCOBALAMIN
     Indication: MULTIPLE SCLEROSIS
     Dosage: 1500 UG, QD
     Route: 048
     Dates: start: 2010
  14. OMEGA 3 [Concomitant]
     Active Substance: OMEGA-3 FATTY ACIDS
     Indication: DRY EYE
     Dosage: 1200 MG, QD
     Route: 048
     Dates: start: 201003
  15. LYRICA [Concomitant]
     Active Substance: PREGABALIN
     Indication: PAIN
  16. MULTI VITAMIN [Concomitant]
     Active Substance: VITAMINS
     Indication: MULTIPLE SCLEROSIS
     Dosage: 1 DF, QD
     Route: 048
     Dates: start: 2000
  17. OMEPRAZOLE. [Concomitant]
     Active Substance: OMEPRAZOLE
     Indication: GASTROOESOPHAGEAL REFLUX DISEASE
     Dosage: 20 MG, QD
     Route: 048
     Dates: start: 200503
  18. MAGNESIUM [Concomitant]
     Active Substance: MAGNESIUM
     Indication: DYSPEPSIA
     Dosage: 500 MG, QD
     Route: 048
     Dates: start: 201404

REACTIONS (11)
  - Food craving [Recovered/Resolved]
  - Fatigue [Not Recovered/Not Resolved]
  - Blood cholesterol increased [Not Recovered/Not Resolved]
  - Cognitive disorder [Not Recovered/Not Resolved]
  - Musculoskeletal pain [Not Recovered/Not Resolved]
  - Vomiting [Recovered/Resolved]
  - Weight increased [Recovered/Resolved]
  - Neck pain [Not Recovered/Not Resolved]
  - Nasopharyngitis [Recovering/Resolving]
  - Balance disorder [Not Recovered/Not Resolved]
  - Headache [Recovered/Resolved]

NARRATIVE: CASE EVENT DATE: 20150528
